FAERS Safety Report 9913914 (Version 5)
Quarter: 2014Q4

REPORT INFORMATION
  Report Type: Spontaneous
  Country: US (occurrence: US)
  Receive Date: 20140220
  Receipt Date: 20141001
  Transmission Date: 20150529
  Serious: Yes (Hospitalization, Other)
  Sender: FDA-Public Use
  Company Number: US-BAYER-2014-026823

PATIENT
  Age: 21 Year
  Sex: Female
  Weight: 58.5 kg

DRUGS (3)
  1. PRENATAL VITAMINS [VIT C,B5,B12,D2,B3,B6,RETINOL PALMIT,B2,B1 MONO [Concomitant]
  2. MIRENA [Suspect]
     Active Substance: LEVONORGESTREL
     Indication: CONTRACEPTION
     Dosage: 20 MCG/24HR, CONT
     Route: 015
     Dates: start: 20080430, end: 20120210
  3. NASONEX [Concomitant]
     Active Substance: MOMETASONE FUROATE

REACTIONS (14)
  - Uterine perforation [None]
  - Premature labour [None]
  - Drug ineffective [None]
  - Injury [None]
  - Emotional distress [None]
  - Anxiety [None]
  - Unwanted pregnancy [None]
  - Abdominal pain [None]
  - Medical device discomfort [None]
  - Haemorrhage in pregnancy [None]
  - Pelvic pain [None]
  - Internal injury [None]
  - Depression [None]
  - Fear [None]

NARRATIVE: CASE EVENT DATE: 20121212
